FAERS Safety Report 25189487 (Version 1)
Quarter: 2025Q2

REPORT INFORMATION
  Report Type: Spontaneous
  Country: US (occurrence: US)
  Receive Date: 20250411
  Receipt Date: 20250411
  Transmission Date: 20250716
  Serious: Yes (Hospitalization)
  Sender: CARNEGIE PHARMACEUTICALS
  Company Number: US-CARNEGIE-000066

PATIENT
  Age: 16 Day
  Sex: Male

DRUGS (2)
  1. TOBRAMYCIN [Concomitant]
     Active Substance: TOBRAMYCIN
     Indication: Inclusion conjunctivitis neonatal
     Route: 047
  2. ERYTHROMYCIN [Suspect]
     Active Substance: ERYTHROMYCIN
     Indication: Antibiotic prophylaxis
     Route: 047

REACTIONS (1)
  - Drug ineffective [Unknown]
